FAERS Safety Report 23064785 (Version 5)
Quarter: 2024Q1

REPORT INFORMATION
  Report Type: Spontaneous
  Country: PT (occurrence: PT)
  Receive Date: 20231013
  Receipt Date: 20240118
  Transmission Date: 20240410
  Serious: Yes (Death, Hospitalization, Other)
  Sender: FDA-Public Use
  Company Number: PT-BAXTER-2023BAX032633

PATIENT
  Age: 56 Year
  Sex: Male
  Weight: 70.7 kg

DRUGS (6)
  1. EXTRANEAL [Suspect]
     Active Substance: CALCIUM CHLORIDE\ICODEXTRIN\MAGNESIUM CHLORIDE\SODIUM CHLORIDE\SODIUM LACTATE
     Indication: Peritoneal dialysis
     Dosage: 1 CYCLE PER DAY
     Route: 033
     Dates: start: 20230606
  2. EXTRANEAL [Suspect]
     Active Substance: CALCIUM CHLORIDE\ICODEXTRIN\MAGNESIUM CHLORIDE\SODIUM CHLORIDE\SODIUM LACTATE
     Indication: Cardiorenal syndrome
     Dosage: 1 CYCLE PER DAY
     Route: 033
     Dates: start: 20230613, end: 20230923
  3. CALCIUM CHLORIDE\DEXTROSE\MAGNESIUM CHLORIDE\SODIUM CHLORIDE [Suspect]
     Active Substance: CALCIUM CHLORIDE\DEXTROSE\MAGNESIUM CHLORIDE\SODIUM CHLORIDE
     Indication: Cardiorenal syndrome
     Dosage: 2 CYCLES PER DAY
     Route: 033
     Dates: start: 20230606
  4. CALCIUM CHLORIDE\DEXTROSE\MAGNESIUM CHLORIDE\SODIUM CHLORIDE [Suspect]
     Active Substance: CALCIUM CHLORIDE\DEXTROSE\MAGNESIUM CHLORIDE\SODIUM CHLORIDE
     Indication: Peritoneal dialysis
     Dosage: 3 CYCLES PER DAY (DOSE INCREASED)
     Route: 033
     Dates: start: 20230613
  5. CALCIUM CL\DEXTROSE\MAGNESIUM CL\SODIUM BICAR\SODIUM CL\SODIUM LACT [Suspect]
     Active Substance: CALCIUM CHLORIDE\DEXTROSE MONOHYDRATE\MAGNESIUM CHLORIDE\SODIUM BICARBONATE\SODIUM CHLORIDE\SODIUM L
     Indication: Peritoneal dialysis
     Dosage: 1 MANUAL EXCHANGE
     Route: 033
     Dates: end: 20230923
  6. CALCIUM CL\DEXTROSE\MAGNESIUM CL\SODIUM BICAR\SODIUM CL\SODIUM LACT [Suspect]
     Active Substance: CALCIUM CHLORIDE\DEXTROSE MONOHYDRATE\MAGNESIUM CHLORIDE\SODIUM BICARBONATE\SODIUM CHLORIDE\SODIUM L
     Indication: Ultrafiltration failure

REACTIONS (6)
  - Cardio-respiratory arrest [Fatal]
  - Emphysematous cholecystitis [Recovered/Resolved]
  - Therapy interrupted [Not Recovered/Not Resolved]
  - Device malfunction [Unknown]
  - Device dislocation [Unknown]
  - Agitation [Unknown]

NARRATIVE: CASE EVENT DATE: 20230918
